FAERS Safety Report 5312988-5 (Version None)
Quarter: 2007Q2

REPORT INFORMATION
  Report Type: 
  Country: None (occurrence: None)
  Receive Date: 20070430
  Receipt Date: 20070418
  Transmission Date: 20071010
  Serious: Yes (Other)
  Sender: FDA-Public Use
  Company Number: US-PFIZER INC-2007031795

PATIENT
  Sex: Male
  Weight: 79.4 kg

DRUGS (4)
  1. NEURONTIN [Suspect]
     Indication: DIABETIC NEUROPATHY
     Dates: start: 20040101, end: 20070401
  2. NEURONTIN [Suspect]
     Indication: LIMB DISCOMFORT
  3. LYRICA [Suspect]
     Indication: DIABETIC NEUROPATHY
     Dates: start: 20070401
  4. LYRICA [Suspect]
     Indication: LIMB DISCOMFORT

REACTIONS (3)
  - ABASIA [None]
  - DRUG INEFFECTIVE [None]
  - UNEVALUABLE EVENT [None]
